FAERS Safety Report 4853510-7 (Version None)
Quarter: 2005Q4

REPORT INFORMATION
  Report Type: 
  Country: None (occurrence: None)
  Receive Date: 20051214
  Receipt Date: 20051205
  Transmission Date: 20060501
  Serious: Yes (Hospitalization)
  Sender: FDA-Public Use
  Company Number: US-ABBOTT-05P-163-0318652-00

PATIENT
  Age: 3 Year
  Sex: Female

DRUGS (1)
  1. OMNICEF [Suspect]
     Indication: OTITIS MEDIA
     Route: 048

REACTIONS (1)
  - PNEUMOCOCCAL SEPSIS [None]
